FAERS Safety Report 5119206-1 (Version None)
Quarter: 2006Q4

REPORT INFORMATION
  Report Type: 
  Country: None (occurrence: None)
  Receive Date: 20061003
  Receipt Date: 20060922
  Transmission Date: 20070319
  Serious: Yes (Hospitalization)
  Sender: FDA-Public Use
  Company Number: JP-JNJFOC-20041006286

PATIENT
  Sex: Female
  Weight: 53 kg

DRUGS (34)
  1. REMICADE [Suspect]
     Route: 042
  2. REMICADE [Suspect]
     Route: 042
  3. REMICADE [Suspect]
     Route: 042
  4. REMICADE [Suspect]
     Route: 042
  5. REMICADE [Suspect]
     Route: 042
  6. REMICADE [Suspect]
     Route: 042
  7. REMICADE [Suspect]
     Route: 042
  8. REMICADE [Suspect]
     Route: 042
  9. REMICADE [Suspect]
     Route: 042
  10. REMICADE [Suspect]
     Route: 042
  11. REMICADE [Suspect]
     Route: 042
  12. REMICADE [Suspect]
     Route: 042
  13. REMICADE [Suspect]
     Route: 042
  14. REMICADE [Suspect]
     Route: 042
  15. REMICADE [Suspect]
     Route: 042
  16. REMICADE [Suspect]
     Route: 042
  17. REMICADE [Suspect]
     Indication: RHEUMATOID ARTHRITIS
     Route: 042
  18. RHEUMATREX [Suspect]
     Route: 048
  19. RHEUMATREX [Suspect]
     Route: 048
  20. RHEUMATREX [Suspect]
     Route: 048
  21. RHEUMATREX [Suspect]
     Route: 048
  22. RHEUMATREX [Suspect]
     Indication: RHEUMATOID ARTHRITIS
     Route: 048
  23. PREDONINE [Suspect]
     Indication: RHEUMATOID ARTHRITIS
     Route: 048
  24. VOLTAREN [Concomitant]
     Indication: RHEUMATOID ARTHRITIS
     Route: 054
  25. MUCOSTA [Concomitant]
     Indication: GASTRITIS
     Route: 048
  26. NORVASC [Concomitant]
     Indication: HYPERTENSION
     Route: 048
  27. PITAVASTATIN CALCIUM [Concomitant]
     Indication: HYPERLIPIDAEMIA
     Route: 048
  28. LORNOXICAM [Concomitant]
     Indication: RHEUMATOID ARTHRITIS
     Route: 048
  29. LENDORMIN [Concomitant]
     Route: 048
  30. ROHYPNOL [Concomitant]
     Route: 048
  31. ELCITONIN [Concomitant]
     Route: 030
  32. DOGMATYL [Concomitant]
     Route: 048
  33. SILECE [Concomitant]
     Route: 048
  34. ALOSENN [Concomitant]
     Route: 048

REACTIONS (7)
  - ALANINE AMINOTRANSFERASE INCREASED [None]
  - ASPARTATE AMINOTRANSFERASE INCREASED [None]
  - BLOOD ALKALINE PHOSPHATASE INCREASED [None]
  - GAMMA-GLUTAMYLTRANSFERASE INCREASED [None]
  - HYPERLIPIDAEMIA [None]
  - LISTERIOSIS [None]
  - PHARYNGOLARYNGEAL PAIN [None]
